FAERS Safety Report 23475303 (Version 1)
Quarter: 2024Q1

REPORT INFORMATION
  Report Type: Report from Study
  Country: US (occurrence: US)
  Receive Date: 20240204
  Receipt Date: 20240204
  Transmission Date: 20240410
  Serious: No
  Sender: FDA-Public Use
  Company Number: US-EXELIXIS-CABO-22059156

PATIENT
  Age: 36 Year
  Sex: Male

DRUGS (1)
  1. CABOMETYX [Suspect]
     Active Substance: CABOZANTINIB S-MALATE
     Indication: Renal cancer
     Dosage: 40 MG, QD
     Route: 048
     Dates: start: 20221104

REACTIONS (4)
  - Infection [Unknown]
  - Rash erythematous [Recovering/Resolving]
  - Dry skin [Unknown]
  - Blister [Unknown]

NARRATIVE: CASE EVENT DATE: 20221101
